FAERS Safety Report 9332172 (Version 2)
Quarter: 2013Q3

REPORT INFORMATION
  Report Type: Spontaneous
  Country: US (occurrence: US)
  Receive Date: 20130606
  Receipt Date: 20130912
  Transmission Date: 20140515
  Serious: No
  Sender: FDA-Public Use
  Company Number: US-BIOGENIDEC-2013BI050198

PATIENT
  Age: 63 Year
  Sex: Female

DRUGS (2)
  1. TYSABRI [Suspect]
     Indication: MULTIPLE SCLEROSIS
     Route: 042
     Dates: start: 20130218
  2. CLARITIN [Concomitant]
     Indication: MULTIPLE ALLERGIES

REACTIONS (5)
  - Influenza like illness [Recovered/Resolved]
  - Bone pain [Recovered/Resolved]
  - Neuralgia [Recovered/Resolved with Sequelae]
  - Headache [Recovered/Resolved with Sequelae]
  - Arthralgia [Unknown]
